FAERS Safety Report 18572385 (Version 1)
Quarter: 2020Q4

REPORT INFORMATION
  Report Type: Report from Study
  Country: None (occurrence: NL)
  Receive Date: 20201203
  Receipt Date: 20201203
  Transmission Date: 20210114
  Serious: Yes (Other)
  Sender: FDA-Public Use
  Company Number: NL-ABBVIE-20K-114-3602258-00

PATIENT
  Sex: Male

DRUGS (4)
  1. MOVICOLON [Concomitant]
     Active Substance: POLYETHYLENE GLYCOL 3350\POTASSIUM CHLORIDE\SODIUM BICARBONATE\SODIUM CHLORIDE
     Indication: ABNORMAL FAECES
  2. DUODOPA [Suspect]
     Active Substance: CARBIDOPA\LEVODOPA
     Indication: PARKINSON^S DISEASE
     Dosage: REMAINS AT 16 HOURS
     Route: 050
     Dates: start: 20180214
  3. RIVASTIGMIN [Concomitant]
     Active Substance: RIVASTIGMINE
     Indication: PRODUCT USED FOR UNKNOWN INDICATION
     Dosage: PATCHES
  4. DUODOPA [Suspect]
     Active Substance: CARBIDOPA\LEVODOPA

REACTIONS (10)
  - Memory impairment [Unknown]
  - Intestinal haemorrhage [Recovered/Resolved]
  - Weight decreased [Recovered/Resolved]
  - Illness [Not Recovered/Not Resolved]
  - Cognitive disorder [Unknown]
  - Bedridden [Not Recovered/Not Resolved]
  - On and off phenomenon [Unknown]
  - Cholecystectomy [Unknown]
  - Disturbance in attention [Unknown]
  - Confusional state [Unknown]

NARRATIVE: CASE EVENT DATE: 2020
